FAERS Safety Report 12974980 (Version 2)
Quarter: 2016Q4

REPORT INFORMATION
  Report Type: Spontaneous
  Country: FR (occurrence: FR)
  Receive Date: 20161125
  Receipt Date: 20161207
  Transmission Date: 20170207
  Serious: Yes (Hospitalization, Other)
  Sender: FDA-Public Use
  Company Number: FR-PFIZER INC-2016539409

PATIENT
  Age: 12 Year
  Sex: Male

DRUGS (3)
  1. SALAZOPYRINE [Suspect]
     Active Substance: SULFASALAZINE
     Dosage: 500 MG, 2X/DAY (2ND WEEK)
     Route: 048
  2. SALAZOPYRINE [Suspect]
     Active Substance: SULFASALAZINE
     Indication: JUVENILE SPONDYLOARTHRITIS
     Dosage: 500 MG, DAILY (1ST WEEK)
     Route: 048
     Dates: start: 20161003
  3. SALAZOPYRINE [Suspect]
     Active Substance: SULFASALAZINE
     Dosage: 500 MG, 3X/DAY (3RD WEEK)
     Route: 048
     Dates: start: 20161021, end: 20161021

REACTIONS (2)
  - Drug reaction with eosinophilia and systemic symptoms [Recovering/Resolving]
  - Nasopharyngitis [Unknown]

NARRATIVE: CASE EVENT DATE: 20161021
